FAERS Safety Report 5282884-0 (Version None)
Quarter: 2007Q2

REPORT INFORMATION
  Report Type: 
  Country: None (occurrence: None)
  Receive Date: 20070402
  Receipt Date: 20070320
  Transmission Date: 20071010
  Serious: Yes (Other)
  Sender: FDA-Public Use
  Company Number: PHEH2007US03316

PATIENT
  Age: 71 Week
  Sex: Female

DRUGS (1)
  1. FAMVIR [Suspect]
     Indication: HERPES ZOSTER
     Dosage: 500 MG, UNK
     Route: 048
     Dates: start: 20070217, end: 20070217

REACTIONS (2)
  - ANURIA [None]
  - SWELLING FACE [None]
